FAERS Safety Report 4844607-6 (Version None)
Quarter: 2005Q4

REPORT INFORMATION
  Report Type: 
  Country: None (occurrence: None)
  Receive Date: 20051130
  Receipt Date: 20051130
  Transmission Date: 20060501
  Serious: Yes (Hospitalization)
  Sender: FDA-Public Use
  Company Number: None

PATIENT
  Age: 63 Year
  Sex: Female
  Weight: 74.8435 kg

DRUGS (12)
  1. OXALIPLATIN 85 MG/M2 [Suspect]
     Indication: ADENOCARCINOMA
     Dosage: 85 MG/M2 DAYS 1 + 15
     Dates: start: 20051107
  2. OXALIPLATIN 85 MG/M2 [Suspect]
     Indication: GASTROOESOPHAGEAL CANCER
     Dosage: 85 MG/M2 DAYS 1 + 15
     Dates: start: 20051107
  3. OXALIPLATIN 85 MG/M2 [Suspect]
     Indication: METASTASIS
     Dosage: 85 MG/M2 DAYS 1 + 15
     Dates: start: 20051107
  4. TAXOTERE [Suspect]
     Dosage: TAXOTERE DAYS 8
     Dates: start: 20051114
  5. FLUZONE [Suspect]
  6. LEUCOVORIN 500 MG/M2 [Suspect]
  7. ALOXI [Concomitant]
  8. DECADRON [Concomitant]
  9. VIREAD [Concomitant]
  10. LAMITIL [Concomitant]
  11. REGLAN [Concomitant]
  12. MAGIC MIX [Concomitant]

REACTIONS (4)
  - ABDOMINAL PAIN [None]
  - DEHYDRATION [None]
  - DIARRHOEA [None]
  - NEUTROPENIA [None]
